FAERS Safety Report 18382637 (Version 2)
Quarter: 2020Q4

REPORT INFORMATION
  Report Type: Spontaneous
  Country: IL (occurrence: IL)
  Receive Date: 20201014
  Receipt Date: 20201111
  Transmission Date: 20210114
  Serious: Yes (Other)
  Sender: FDA-Public Use
  Company Number: NVSC2020IL267254

PATIENT
  Age: 20 Year
  Sex: Male

DRUGS (6)
  1. METHOTREXATE ^EBEWE^ [Suspect]
     Active Substance: METHOTREXATE
     Indication: PROPHYLAXIS AGAINST GRAFT VERSUS HOST DISEASE
     Dosage: ON DAY 1 AT 15MG/M2=28MG, ONCE/SINGLE
     Route: 042
     Dates: start: 20200819
  2. PREDNISONE. [Concomitant]
     Active Substance: PREDNISONE
     Indication: PRODUCT USED FOR UNKNOWN INDICATION
     Dosage: 1 MG/KG, QD
     Route: 065
  3. METHOTREXATE ^EBEWE^ [Suspect]
     Active Substance: METHOTREXATE
     Dosage: ON DAY 6 AT 10MG/M2=19MG, ONCE/SINGLE
     Route: 042
  4. METHOTREXATE ^EBEWE^ [Suspect]
     Active Substance: METHOTREXATE
     Dosage: ON DAY 3 AT 10MG/M2=19MG, ONCE/SINGLE
     Route: 042
  5. METHYLPREDNISOLONE. [Concomitant]
     Active Substance: METHYLPREDNISOLONE
     Indication: PRODUCT USED FOR UNKNOWN INDICATION
     Dosage: 2 MG/KG, QD
     Route: 065
  6. SANDIMMUN [Suspect]
     Active Substance: CYCLOSPORINE
     Indication: PROPHYLAXIS AGAINST GRAFT VERSUS HOST DISEASE
     Dosage: 130 MG, BID
     Route: 042
     Dates: start: 20200815

REACTIONS (5)
  - Graft versus host disease in skin [Unknown]
  - Product use in unapproved indication [Unknown]
  - Rash maculo-papular [Unknown]
  - Graft versus host disease in gastrointestinal tract [Unknown]
  - Diarrhoea [Unknown]
